FAERS Safety Report 8132139-1 (Version None)
Quarter: 2012Q1

REPORT INFORMATION
  Report Type: 
  Country: None (occurrence: None)
  Receive Date: 20120213
  Receipt Date: 20120203
  Transmission Date: 20120608
  Serious: No
  Sender: FDA-Public Use
  Company Number: US-B.I. PHARMACEUTICALS,INC./RIDGEFIELD-2011-BP-13802BP

PATIENT
  Sex: Female

DRUGS (23)
  1. METOPROLOL SUCCINATE EXTENDED RELEASE [Concomitant]
     Indication: HYPERTENSION
     Dosage: 200 MG
     Route: 048
     Dates: start: 20100101
  2. PERCOCET [Concomitant]
     Indication: MUSCULOSKELETAL PAIN
     Route: 048
     Dates: start: 20111101
  3. TEMAZEPAM [Concomitant]
     Indication: INSOMNIA
     Route: 048
  4. GLIPIZIDE [Concomitant]
     Indication: DIABETES MELLITUS
     Dosage: 5 MG
     Route: 048
  5. VALIUM [Concomitant]
     Indication: ANXIETY
     Route: 048
  6. GLUCOTROL [Concomitant]
     Indication: DIABETES MELLITUS
     Dosage: 0.5 MG
     Route: 048
  7. DIGOXIN [Concomitant]
     Indication: HEART RATE INCREASED
     Route: 048
  8. ERYTHROMYCIN [Suspect]
     Indication: BRONCHITIS
     Dosage: 250 MG
     Route: 048
     Dates: start: 20110529, end: 20110607
  9. HYDROCHLOROTHIAZIDE [Concomitant]
     Indication: HYPERTENSION
     Dosage: 25 MG
     Route: 048
     Dates: start: 20040101
  10. SYNTHROID [Concomitant]
     Indication: HYPOTHYROIDISM
     Dosage: 50 MCG
     Route: 048
  11. DIAZEPAM [Concomitant]
     Indication: ANXIETY
     Dosage: 5 MG
     Route: 048
  12. LOPRESSOR [Concomitant]
     Indication: HYPERTENSION
     Dosage: 100 MG
     Route: 048
  13. LISINOPRIL [Concomitant]
     Indication: HYPERTENSION
     Dosage: 20 MG
     Dates: start: 20100101
  14. HYDROCHLOROTHIAZIDE [Concomitant]
     Indication: OEDEMA
  15. RESTORIL [Concomitant]
     Indication: SLEEP DISORDER
     Dosage: 30 MG
     Route: 048
  16. LEVOTHYROXINE SODIUM [Concomitant]
     Indication: HYPOTHYROIDISM
     Dates: start: 20070101
  17. PRILOSEC [Concomitant]
     Indication: GASTROOESOPHAGEAL REFLUX DISEASE
     Dosage: 20 MG
     Route: 048
  18. DIGOXIN [Concomitant]
     Indication: ATRIAL FIBRILLATION
  19. VITAMIN [Concomitant]
     Route: 048
  20. CALCIUM [Concomitant]
     Route: 048
  21. BUMEX [Concomitant]
     Indication: SWELLING
     Route: 048
  22. PRADAXA [Suspect]
     Indication: ATRIAL FIBRILLATION
     Dosage: 300 MG
     Route: 048
     Dates: start: 20110301
  23. LEVOXYL [Concomitant]
     Indication: HYPOTHYROIDISM
     Dosage: 50 MCG
     Route: 048

REACTIONS (8)
  - TONGUE PRURITUS [None]
  - URINARY INCONTINENCE [None]
  - JOINT SWELLING [None]
  - ARTHRALGIA [None]
  - DIARRHOEA [None]
  - RASH [None]
  - URTICARIA [None]
  - MUSCULOSKELETAL PAIN [None]
